FAERS Safety Report 5108681-4 (Version None)
Quarter: 2006Q3

REPORT INFORMATION
  Report Type: 
  Country: None (occurrence: None)
  Receive Date: 20060915
  Receipt Date: 20060906
  Transmission Date: 20061208
  Serious: Yes (Hospitalization)
  Sender: FDA-Public Use
  Company Number: 2006-BP-10408RO

PATIENT
  Age: 46 Year
  Sex: Female

DRUGS (6)
  1. METHOTREXATE [Suspect]
     Indication: RHEUMATOID ARTHRITIS
     Dosage: SEE TEXT (SEE TEXT, 7.5 TO 12.5 MG/WEEK), PO
     Route: 048
  2. SULFASALAZINE [Concomitant]
  3. HYDROXYCHLOROQUINE SULFATE [Concomitant]
  4. SULINDAC [Concomitant]
  5. PREDNISOLONE [Concomitant]
  6. FOLIC ACID [Concomitant]

REACTIONS (11)
  - ASCITES [None]
  - COSTOVERTEBRAL ANGLE TENDERNESS [None]
  - DYSPNOEA [None]
  - HAEMOGLOBIN DECREASED [None]
  - HEPATOSPLENOMEGALY [None]
  - LYMPHADENOPATHY [None]
  - LYMPHOMA [None]
  - PLEURAL EFFUSION [None]
  - RED BLOOD CELL SEDIMENTATION RATE INCREASED [None]
  - TACHYCARDIA [None]
  - URINARY TRACT INFECTION [None]
